FAERS Safety Report 5097585-1 (Version None)
Quarter: 2006Q3

REPORT INFORMATION
  Report Type: 
  Country: None (occurrence: None)
  Receive Date: 20060901
  Receipt Date: 20060817
  Transmission Date: 20061208
  Serious: Yes (Congenital Anomaly)
  Sender: FDA-Public Use
  Company Number: 008346

PATIENT

DRUGS (4)
  1. DIDANOSINE [Suspect]
     Indication: HIV INFECTION
     Dosage: 250 MG, QD, ORAL
     Route: 048
  2. TENOFOVIR DISOPROXIL FUMARATE + EMTRICITABINE (TENOFOVIR DISOPROXIL FU [Suspect]
     Indication: HIV INFECTION
     Dosage: 245 MG, QD, ORAL
     Route: 048
  3. ATAZANAVIR (ATAZANAVIR) [Suspect]
     Indication: HIV INFECTION
     Dosage: 300 MG, QD, ORAL
     Route: 048
  4. RITONAVIR (RITONAVIR) [Suspect]
     Indication: HIV INFECTION
     Dosage: 100 MG, QD, ORAL
     Route: 048

REACTIONS (2)
  - CONGENITAL MUSCULOSKELETAL ANOMALY [None]
  - DRUG EXPOSURE DURING PREGNANCY [None]
